FAERS Safety Report 7350477-7 (Version None)
Quarter: 2011Q1

REPORT INFORMATION
  Report Type: 
  Country: None (occurrence: None)
  Receive Date: 20110314
  Receipt Date: 20110308
  Transmission Date: 20110831
  Serious: Yes (Life-Threatening, Hospitalization)
  Sender: FDA-Public Use
  Company Number: PHHO2011DE04261

PATIENT
  Sex: Male
  Weight: 66 kg

DRUGS (6)
  1. ENALAPRIL MALEATE [Suspect]
     Indication: HYPERTENSION
     Dosage: 5 MG, BID
     Route: 048
     Dates: start: 20100831, end: 20101031
  2. MYCOPHENOLIC ACID [Suspect]
     Indication: RENAL TRANSPLANT
     Dosage: 1440 MG
     Route: 048
     Dates: start: 20100821
  3. TACROLIMUS [Suspect]
     Indication: RENAL TRANSPLANT
     Dosage: 7 MG
     Route: 048
     Dates: start: 20100910
  4. TACROLIMUS [Suspect]
     Dosage: 6 MG
     Route: 048
  5. VERAPAMIL [Suspect]
     Indication: HYPERTENSION
     Dosage: 40 MG, BID
     Route: 048
     Dates: start: 20100822, end: 20101031
  6. CLONIDIN RIKER [Suspect]
     Indication: HYPERTENSION
     Dosage: 150 MG, BID
     Route: 048
     Dates: start: 20100913, end: 20101031

REACTIONS (10)
  - SYNCOPE [None]
  - BRADYCARDIA [None]
  - HYPOTENSION [None]
  - NAUSEA [None]
  - TRANSPLANT FAILURE [None]
  - ASTHENIA [None]
  - HYPONATRAEMIA [None]
  - RENAL TUBULAR ACIDOSIS [None]
  - HYPERKALAEMIA [None]
  - METABOLIC ACIDOSIS [None]
